FAERS Safety Report 15136665 (Version 1)
Quarter: 2018Q3

REPORT INFORMATION
  Report Type: Spontaneous
  Country: US (occurrence: US)
  Receive Date: 20180618
  Receipt Date: 20180618
  Transmission Date: 20181010
  Serious: Yes (Death)
  Sender: FDA-Public Use
  Company Number: None

PATIENT
  Age: 80 Year
  Sex: Male

DRUGS (8)
  1. SOTALOL. [Concomitant]
     Active Substance: SOTALOL
  2. DOXYCYCLINE. [Concomitant]
     Active Substance: DOXYCYCLINE
  3. FLUTICASONE. [Concomitant]
     Active Substance: FLUTICASONE
  4. OXAZEPAM. [Concomitant]
     Active Substance: OXAZEPAM
  5. PREDNISONE. [Concomitant]
     Active Substance: PREDNISONE
  6. SPIRIVA [Concomitant]
     Active Substance: TIOTROPIUM BROMIDE MONOHYDRATE
  7. ESBRIET [Suspect]
     Active Substance: PIRFENIDONE
     Indication: IDIOPATHIC PULMONARY FIBROSIS
     Dosage: 3 CAPSULES
     Route: 048
     Dates: start: 20180130, end: 2018
  8. LORATADINE. [Concomitant]
     Active Substance: LORATADINE

REACTIONS (1)
  - Death [None]

NARRATIVE: CASE EVENT DATE: 2018
